FAERS Safety Report 14665044 (Version 1)
Quarter: 2018Q1

REPORT INFORMATION
  Report Type: Spontaneous
  Country: US (occurrence: US)
  Receive Date: 20180321
  Receipt Date: 20180321
  Transmission Date: 20180509
  Serious: Yes (Hospitalization)
  Sender: FDA-Public Use
  Company Number: PHHY2018US040114

PATIENT
  Age: 32 Year
  Sex: Female

DRUGS (3)
  1. AMOXICILLIN. [Concomitant]
     Active Substance: AMOXICILLIN
     Indication: HELICOBACTER GASTRITIS
     Route: 065
  2. PANTOPRAZOLE [Concomitant]
     Active Substance: PANTOPRAZOLE
     Indication: HELICOBACTER GASTRITIS
     Route: 065
  3. CLARITHROMYCIN. [Suspect]
     Active Substance: CLARITHROMYCIN
     Indication: HELICOBACTER GASTRITIS
     Route: 065

REACTIONS (4)
  - Jaundice [Recovered/Resolved]
  - Pruritus [Recovered/Resolved]
  - Drug prescribing error [Unknown]
  - Drug-induced liver injury [Unknown]
